FAERS Safety Report 19899662 (Version 1)
Quarter: 2021Q3

REPORT INFORMATION
  Report Type: Spontaneous
  Country: IT (occurrence: IT)
  Receive Date: 20210930
  Receipt Date: 20210930
  Transmission Date: 20211014
  Serious: Yes (Hospitalization)
  Sender: FDA-Public Use
  Company Number: IT-UCBSA-2021045142

PATIENT
  Age: 46 Year
  Sex: Male

DRUGS (3)
  1. PHENOBARBITAL SODIUM. [Suspect]
     Active Substance: PHENOBARBITAL SODIUM
     Indication: PETIT MAL EPILEPSY
     Dosage: 1 DOSAGE FORM, ONCE DAILY (QD)
     Route: 048
  2. TEGRETOL [Suspect]
     Active Substance: CARBAMAZEPINE
     Indication: PETIT MAL EPILEPSY
     Dosage: 1 DOSAGE FORM, ONCE DAILY (QD)
     Route: 048
  3. LACOSAMIDE. [Suspect]
     Active Substance: LACOSAMIDE
     Indication: PETIT MAL EPILEPSY
     Dosage: 1 DOSAGE FORM, PER DAY
     Route: 048

REACTIONS (4)
  - Language disorder [Recovering/Resolving]
  - Asthenia [Recovering/Resolving]
  - Overdose [Unknown]
  - Aphasia [Recovering/Resolving]

NARRATIVE: CASE EVENT DATE: 20210819
